FAERS Safety Report 11320342 (Version 2)
Quarter: 2015Q3

REPORT INFORMATION
  Report Type: Spontaneous
  Country: US (occurrence: US)
  Receive Date: 20150729
  Receipt Date: 20150806
  Transmission Date: 20151125
  Serious: Yes (Hospitalization, Other)
  Sender: FDA-Public Use
  Company Number: US-BAXTER-2015BAX041031

PATIENT
  Sex: Female

DRUGS (2)
  1. DIANEAL LOW CALCIUM PERITONEAL DIALYSIS SOLUTION WITH DEXTROSE [Suspect]
     Active Substance: CALCIUM CHLORIDE\DEXTROSE\MAGNESIUM CHLORIDE\SODIUM CHLORIDE\SODIUM LACTATE
     Indication: CHRONIC KIDNEY DISEASE
     Route: 033
  2. INSULIN [Concomitant]
     Active Substance: INSULIN NOS
     Indication: DIABETES MELLITUS
     Route: 065

REACTIONS (6)
  - Catheter site infection [Recovered/Resolved]
  - Gastrointestinal haemorrhage [Recovering/Resolving]
  - Oesophageal haemorrhage [Recovering/Resolving]
  - Blood test abnormal [Recovering/Resolving]
  - Diabetes mellitus inadequate control [Recovering/Resolving]
  - Oesophageal polyp [Recovering/Resolving]

NARRATIVE: CASE EVENT DATE: 20150713
